FAERS Safety Report 7483376-0 (Version None)
Quarter: 2011Q2

REPORT INFORMATION
  Report Type: 
  Country: None (occurrence: None)
  Receive Date: 20110517
  Receipt Date: 20110408
  Transmission Date: 20111010
  Serious: Yes (Hospitalization, Other)
  Sender: FDA-Public Use
  Company Number: US-BAYER-2010-004332

PATIENT
  Age: 29 Year
  Sex: Female
  Weight: 62.132 kg

DRUGS (5)
  1. VIOXX [Concomitant]
  2. ALBUTEROL [Concomitant]
  3. YAZ [Suspect]
     Dosage: UNK
     Dates: start: 20080418, end: 20081020
  4. NSAID'S [Concomitant]
  5. ATROVENT [Concomitant]

REACTIONS (9)
  - VOMITING [None]
  - INJURY [None]
  - CHEST PAIN [None]
  - PAIN [None]
  - PULMONARY EMBOLISM [None]
  - GENERAL PHYSICAL HEALTH DETERIORATION [None]
  - SYNCOPE [None]
  - EMOTIONAL DISTRESS [None]
  - OROPHARYNGEAL PAIN [None]
